FAERS Safety Report 10055520 (Version 1)
Quarter: 2014Q2

REPORT INFORMATION
  Report Type: Spontaneous
  Country: US (occurrence: US)
  Receive Date: 20140403
  Receipt Date: 20140403
  Transmission Date: 20141212
  Serious: Yes (Death, Hospitalization)
  Sender: FDA-Public Use
  Company Number: US-ACCORD-022800

PATIENT
  Age: 57 Year
  Sex: Male

DRUGS (2)
  1. HYDROCHLOROTHIAZIDE [Suspect]
     Indication: HYPERTENSION
  2. MOEXIPRIL/MOEXIPRIL HYDROCHLORIDE [Suspect]
     Indication: HYPERTENSION

REACTIONS (3)
  - Septic shock [Unknown]
  - Organ failure [Unknown]
  - Neutropenic colitis [Fatal]
